FAERS Safety Report 5702152-X (Version None)
Quarter: 2008Q2

REPORT INFORMATION
  Report Type: 
  Country: None (occurrence: None)
  Receive Date: 20080411
  Receipt Date: 20080401
  Transmission Date: 20081010
  Serious: Yes (Hospitalization)
  Sender: FDA-Public Use
  Company Number: DE-AMGEN-02120011

PATIENT
  Sex: Female

DRUGS (4)
  1. ENBREL [Suspect]
     Indication: ANKYLOSING SPONDYLITIS
     Route: 058
     Dates: start: 20010901, end: 20020611
  2. ENBREL [Suspect]
  3. TRAMADOL HCL [Concomitant]
     Dates: start: 20020212
  4. ESTROGENS [Concomitant]
     Dates: start: 19970101

REACTIONS (1)
  - CROHN'S DISEASE [None]
